FAERS Safety Report 15767882 (Version 1)
Quarter: 2018Q4

REPORT INFORMATION
  Report Type: Spontaneous
  Country: US (occurrence: US)
  Receive Date: 20181227
  Receipt Date: 20181227
  Transmission Date: 20190205
  Serious: Yes (Other)
  Sender: FDA-Public Use
  Company Number: US-PFIZER INC-2018518168

PATIENT
  Age: 3 Year
  Sex: Male

DRUGS (2)
  1. METHOTREXATE SODIUM. [Suspect]
     Active Substance: METHOTREXATE SODIUM
     Indication: JUVENILE IDIOPATHIC ARTHRITIS
     Dosage: UNK
  2. ENBREL [Suspect]
     Active Substance: ETANERCEPT
     Indication: JUVENILE IDIOPATHIC ARTHRITIS
     Dosage: 12.5 MG, QWK
     Route: 065
     Dates: end: 201806

REACTIONS (6)
  - Juvenile idiopathic arthritis [Not Recovered/Not Resolved]
  - Gastric disorder [Unknown]
  - Weight decreased [Recovered/Resolved]
  - Drug effect decreased [Unknown]
  - Abdominal pain upper [Recovered/Resolved]
  - Growth failure [Unknown]
